FAERS Safety Report 12219343 (Version 4)
Quarter: 2017Q1

REPORT INFORMATION
  Report Type: Spontaneous
  Country: US (occurrence: US)
  Receive Date: 20160329
  Receipt Date: 20170308
  Transmission Date: 20170428
  Serious: No
  Sender: FDA-Public Use
  Company Number: US-PFIZER INC-2016150309

PATIENT
  Age: 7 Year
  Sex: Male
  Weight: 23 kg

DRUGS (4)
  1. GUANFACINE. [Concomitant]
     Active Substance: GUANFACINE
     Dosage: 1.5 MG, DAILY
     Dates: start: 201509
  2. TENEX [Concomitant]
     Active Substance: GUANFACINE HYDROCHLORIDE
     Indication: ATTENTION DEFICIT/HYPERACTIVITY DISORDER
     Dosage: 2.5 MG, DAILY (1.5MG QAM, 1MG QPM)
     Dates: start: 201506
  3. QUILLIVANT XR [Suspect]
     Active Substance: METHYLPHENIDATE HYDROCHLORIDE
     Indication: ATTENTION DEFICIT/HYPERACTIVITY DISORDER
     Dosage: 3 ML, 1X/DAY IN THE MORNING
     Route: 048
  4. QUILLIVANT XR [Suspect]
     Active Substance: METHYLPHENIDATE HYDROCHLORIDE
     Dosage: 3.5 ML, 1X/DAY (3.5ML OF 5MG/1ML SUSPENSION QAM)
     Route: 048
     Dates: start: 201512

REACTIONS (4)
  - Abnormal behaviour [Recovered/Resolved]
  - Anger [Recovered/Resolved]
  - Drug ineffective [Recovered/Resolved]
  - Emotional disorder [Recovered/Resolved]

NARRATIVE: CASE EVENT DATE: 201602
